FAERS Safety Report 22337005 (Version 2)
Quarter: 2023Q2

REPORT INFORMATION
  Report Type: Spontaneous
  Country: US (occurrence: US)
  Receive Date: 20230518
  Receipt Date: 20230523
  Transmission Date: 20230721
  Serious: Yes (Other)
  Sender: FDA-Public Use
  Company Number: US-BRISTOL-MYERS SQUIBB COMPANY-2023-067818

PATIENT
  Age: 66 Year
  Sex: Male

DRUGS (1)
  1. REVLIMID [Suspect]
     Active Substance: LENALIDOMIDE
     Indication: Plasma cell myeloma
     Dosage: ONCE DAILY FOR 21 DAYS ON AD 7 DAYS OFF
     Route: 048
     Dates: start: 202212

REACTIONS (5)
  - Muscle spasms [Unknown]
  - Deafness [Unknown]
  - Dry skin [Unknown]
  - Paraesthesia [Unknown]
  - Tinnitus [Unknown]
